FAERS Safety Report 5909617-6 (Version None)
Quarter: 2008Q4

REPORT INFORMATION
  Report Type: 
  Country: None (occurrence: None)
  Receive Date: 20081002
  Receipt Date: 20080922
  Transmission Date: 20090506
  Serious: Yes (Other)
  Sender: FDA-Public Use
  Company Number: TRP_05901_2008

PATIENT
  Sex: Female

DRUGS (2)
  1. RIBASPHERE [Suspect]
     Indication: HEPATITIS C VIRUS TEST
     Dosage: (1000 MG ORAL)
     Route: 048
     Dates: start: 20070602, end: 20080426
  2. PEGASYS [Suspect]
     Indication: HEPATITIS C VIRUS TEST
     Dosage: (180 UG 1X/WEEK SUBCUTANEOUS)
     Route: 058
     Dates: start: 20070602, end: 20080426

REACTIONS (12)
  - CRYING [None]
  - DIZZINESS [None]
  - HYPERTHYROIDISM [None]
  - HYPOTHYROIDISM [None]
  - INSOMNIA [None]
  - OEDEMA PERIPHERAL [None]
  - PURPURA [None]
  - RASH GENERALISED [None]
  - RASH PRURITIC [None]
  - SCRATCH [None]
  - TREMOR [None]
  - VISION BLURRED [None]
